FAERS Safety Report 5196945-8 (Version None)
Quarter: 2006Q4

REPORT INFORMATION
  Report Type: 
  Country: None (occurrence: None)
  Receive Date: 20061227
  Receipt Date: 20061211
  Transmission Date: 20070319
  Serious: Yes (Death, Hospitalization)
  Sender: FDA-Public Use
  Company Number: 2006148379

PATIENT
  Age: 71 Year
  Sex: Male

DRUGS (24)
  1. ZYVOX [Suspect]
     Indication: PNEUMONIA STAPHYLOCOCCAL
     Dosage: 1200 MG, INTRAVENOUS
     Route: 042
     Dates: start: 20060428, end: 20060613
  2. ASPIRIN [Concomitant]
  3. NORVASC [Concomitant]
  4. LANSOPRAZOLE [Concomitant]
  5. TOTAL PARENTERAL NUTRITION (TOTAL PARENTERAL NUTRITION) [Concomitant]
  6. PN TWIN (AMINO ACIDS NOS, CARBOHYDRATES NOS, ELECTROLYTES NOS [Concomitant]
  7. NEOLAMIN MULTI (VITAMINS NOS) [Concomitant]
  8. ELEMENMIC (MINERALS NOS) [Concomitant]
  9. POTASSIUM CHLORIDE [Concomitant]
  10. FESIN (SACCHARATED IRON OXIDE) [Concomitant]
  11. PRODIF (FOSFLUCONAZOLE) [Concomitant]
  12. FOY (GABEXATE MESILATE) [Concomitant]
  13. ALL  OTHER THERAPEUTIC PRODUCTS (ALL OTHER THERAPEUTIC PRODUCTS) [Concomitant]
  14. DIPRIVAN [Concomitant]
  15. VECURONIUM BROMIDE [Concomitant]
  16. DOPAMINE HYDROCHLORIDE [Concomitant]
  17. DIALYSATE (CALCIUM CHLORIDE DIHYDRATE, GLUCOSE, MAGNESIUM CHLORIDE ANH [Concomitant]
  18. MICAFUNGIN (MICAFUNGIN) [Concomitant]
  19. TIENAM (CILASTATIN, IMIPENEM) [Concomitant]
  20. FAMOTIDINE [Concomitant]
  21. LASIX [Concomitant]
  22. ALDACTONE [Concomitant]
  23. DEPAS (ETIZOLAM) [Concomitant]
  24. LASIX [Concomitant]

REACTIONS (1)
  - THROMBOCYTOPENIA [None]
